FAERS Safety Report 13757942 (Version 1)
Quarter: 2017Q3

REPORT INFORMATION
  Report Type: Spontaneous
  Country: SE (occurrence: SE)
  Receive Date: 20170717
  Receipt Date: 20170717
  Transmission Date: 20171127
  Serious: Yes (Other)
  Sender: FDA-Public Use
  Company Number: SE-009507513-1707SWE002542

PATIENT
  Age: 21 Year
  Sex: Female

DRUGS (3)
  1. MIRTAZAPINE. [Suspect]
     Active Substance: MIRTAZAPINE
  2. PROPIOMAZINE [Suspect]
     Active Substance: PROPIOMAZINE
  3. SERTRALINE HYDROCHLORIDE. [Suspect]
     Active Substance: SERTRALINE HYDROCHLORIDE

REACTIONS (4)
  - Intentional self-injury [Unknown]
  - Fatigue [Unknown]
  - Depressed level of consciousness [Unknown]
  - Toxicity to various agents [Unknown]
